FAERS Safety Report 23950624 (Version 2)
Quarter: 2024Q2

REPORT INFORMATION
  Report Type: Report from Study
  Country: CA (occurrence: CA)
  Receive Date: 20240607
  Receipt Date: 20240612
  Transmission Date: 20240715
  Serious: Yes (Life-Threatening, Other)
  Sender: FDA-Public Use
  Company Number: CA-JNJFOC-20240611155

PATIENT
  Age: 38 Year
  Sex: Female

DRUGS (2)
  1. REMICADE [Suspect]
     Active Substance: INFLIXIMAB
     Indication: Crohn^s disease
     Route: 041
     Dates: start: 20151223
  2. IMURAN [Concomitant]
     Active Substance: AZATHIOPRINE

REACTIONS (12)
  - Dyspnoea [Recovered/Resolved]
  - Infusion related reaction [Recovered/Resolved]
  - Kidney infection [Recovered/Resolved]
  - Amenorrhoea [Unknown]
  - Mood swings [Not Recovered/Not Resolved]
  - Depression [Unknown]
  - Anxiety [Unknown]
  - Nasopharyngitis [Unknown]
  - Influenza [Unknown]
  - Rash [Recovered/Resolved]
  - Off label use [Unknown]
  - Product dose omission issue [Unknown]
